FAERS Safety Report 18261522 (Version 1)
Quarter: 2020Q3

REPORT INFORMATION
  Report Type: Spontaneous
  Country: GB (occurrence: GB)
  Receive Date: 20200914
  Receipt Date: 20200914
  Transmission Date: 20201103
  Serious: Yes (Other)
  Sender: FDA-Public Use
  Company Number: GB-TEVA-2020-GB-1826196

PATIENT
  Age: 73 Year
  Sex: Female
  Weight: 57.15 kg

DRUGS (1)
  1. TOLTERODINE [Suspect]
     Active Substance: TOLTERODINE
     Dosage: 4MG
     Dates: end: 2018

REACTIONS (3)
  - Memory impairment [Recovering/Resolving]
  - Hypergammaglobulinaemia benign monoclonal [Unknown]
  - Cognitive disorder [Not Recovered/Not Resolved]

NARRATIVE: CASE EVENT DATE: 2018
